FAERS Safety Report 5073248-3 (Version None)
Quarter: 2006Q3

REPORT INFORMATION
  Report Type: 
  Country: None (occurrence: None)
  Receive Date: 20060802
  Receipt Date: 20060618
  Transmission Date: 20061208
  Serious: Yes (Hospitalization)
  Sender: FDA-Public Use
  Company Number: 2006BH012087

PATIENT
  Age: 90 Year
  Sex: Male

DRUGS (1)
  1. DIANEAL [Suspect]
     Indication: DIALYSIS
     Dosage: 14.0 L;EVERY DAY;IP
     Route: 033

REACTIONS (2)
  - PERICARDIAL EFFUSION [None]
  - TREATMENT NONCOMPLIANCE [None]
